FAERS Safety Report 12155410 (Version 1)
Quarter: 2016Q1

REPORT INFORMATION
  Report Type: Spontaneous
  Country: US (occurrence: US)
  Receive Date: 20160307
  Receipt Date: 20160307
  Transmission Date: 20160526
  Serious: No
  Sender: FDA-Public Use
  Company Number: CHPA2016US002857

PATIENT
  Age: 60 Year
  Sex: Female

DRUGS (2)
  1. VOLTAREN [Suspect]
     Active Substance: DICLOFENAC SODIUM
     Indication: FRACTURE PAIN
  2. VOLTAREN [Suspect]
     Active Substance: DICLOFENAC SODIUM
     Indication: ARTHRITIS
     Dosage: 2 G, ONCE/SINGLE
     Route: 061
     Dates: start: 20160303, end: 20160303

REACTIONS (3)
  - Product use issue [Unknown]
  - Drug administered at inappropriate site [Unknown]
  - Off label use [Unknown]
